FAERS Safety Report 10335581 (Version 2)
Quarter: 2014Q3

REPORT INFORMATION
  Report Type: Spontaneous
  Country: US (occurrence: US)
  Receive Date: 20140723
  Receipt Date: 20140723
  Transmission Date: 20150326
  Serious: No
  Sender: FDA-Public Use
  Company Number: US-UNITED THERAPEUTICS-UTC-046886

PATIENT
  Sex: Female
  Weight: 87.08 kg

DRUGS (3)
  1. TRACLEER [Concomitant]
     Active Substance: BOSENTAN\BOSENTAN MONOHYDRATE
  2. REMODULIN [Suspect]
     Active Substance: TREPROSTINIL
     Dosage: .034 UG/KG/MIN
     Route: 058
     Dates: start: 20050310
  3. ADCIRCA [Concomitant]
     Active Substance: TADALAFIL

REACTIONS (5)
  - Device occlusion [Recovered/Resolved]
  - Nasopharyngitis [Unknown]
  - Infusion site haemorrhage [Unknown]
  - Productive cough [Unknown]
  - Drug dose omission [Recovered/Resolved]
